FAERS Safety Report 4914054-7 (Version None)
Quarter: 2006Q1

REPORT INFORMATION
  Report Type: 
  Country: None (occurrence: None)
  Receive Date: 20060203
  Receipt Date: 20060117
  Transmission Date: 20060701
  Serious: Yes (Other)
  Sender: FDA-Public Use
  Company Number: 200510639BYL

PATIENT
  Age: 6 Year
  Sex: Male

DRUGS (5)
  1. GAMIMUNE N 5% [Suspect]
     Indication: SECONDARY IMMUNODEFICIENCY
     Dosage: 5.0 G, TOTAL DAILY, INTRAVENOUS
     Route: 042
     Dates: start: 20051201
  2. ZINC SULFATE [Concomitant]
  3. ALFAROL [Concomitant]
  4. ASPARA K [Concomitant]
  5. BIOFERMIN [Concomitant]

REACTIONS (2)
  - INFUSION RELATED REACTION [None]
  - PAIN IN EXTREMITY [None]
